FAERS Safety Report 8759296 (Version 2)
Quarter: 2012Q4

REPORT INFORMATION
  Report Type: 
  Country: US (occurrence: US)
  Receive Date: 20120829
  Receipt Date: 20121018
  Transmission Date: 20130627
  Serious: Yes (Other)
  Sender: FDA-Public Use
  Company Number: US-BAYER-2012-089121

PATIENT
  Age: 56 Year
  Sex: Female
  Weight: 79.37 kg

DRUGS (1)
  1. BAYER ADVANCED ASPIRIN EXTRA STRENGTH [Suspect]
     Indication: BACK PAIN
     Dosage: 2 TAB, PRN
     Route: 048
     Dates: start: 201204, end: 20120823

REACTIONS (2)
  - Foreign body [Recovered/Resolved]
  - Choking [Recovered/Resolved]
